FAERS Safety Report 16928639 (Version 1)
Quarter: 2019Q4

REPORT INFORMATION
  Report Type: Spontaneous
  Country: US (occurrence: US)
  Receive Date: 20190824
  Receipt Date: 20190824
  Transmission Date: 20200122
  Serious: No
  Sender: FDA-Public Use
  Company Number: None

PATIENT
  Age: 54 Year
  Sex: Female

DRUGS (1)
  1. COPAXONE [Suspect]
     Active Substance: GLATIRAMER ACETATE
     Route: 058

REACTIONS (5)
  - Hair disorder [None]
  - Inflammation [None]
  - Alopecia [None]
  - Visual impairment [None]
  - Skin disorder [None]

NARRATIVE: CASE EVENT DATE: 20190824
